FAERS Safety Report 17006880 (Version 1)
Quarter: 2019Q4

REPORT INFORMATION
  Report Type: Spontaneous
  Country: IT (occurrence: IT)
  Receive Date: 20191107
  Receipt Date: 20191107
  Transmission Date: 20200122
  Serious: Yes (Other)
  Sender: FDA-Public Use
  Company Number: IT-009507513-1911ITA001962

PATIENT
  Age: 62 Year
  Sex: Female

DRUGS (1)
  1. PEMBROLIZUMAB. [Suspect]
     Active Substance: PEMBROLIZUMAB
     Indication: MALIGNANT MELANOMA
     Dosage: USUALLY 2 MILLIGRAM/KILOGRAM, Q3W
     Route: 042

REACTIONS (2)
  - Hyperthyroidism [Unknown]
  - Immune-mediated hypothyroidism [Unknown]
